FAERS Safety Report 20950460 (Version 1)
Quarter: 2022Q2

REPORT INFORMATION
  Report Type: Spontaneous
  Country: US (occurrence: US)
  Receive Date: 20220613
  Receipt Date: 20220613
  Transmission Date: 20220721
  Serious: Yes (Hospitalization, Other)
  Sender: FDA-Public Use
  Company Number: US-Hikma Pharmaceuticals USA Inc.-US-H14001-22-01438

PATIENT
  Age: 63 Year
  Sex: Male

DRUGS (6)
  1. VANCOMYCIN [Suspect]
     Active Substance: VANCOMYCIN
     Indication: Staphylococcal infection
     Dosage: UNKNOWN
     Route: 065
     Dates: start: 20210216, end: 20210226
  2. VANCOMYCIN [Suspect]
     Active Substance: VANCOMYCIN
     Dosage: UNKNOWN
     Route: 065
     Dates: start: 20210414
  3. DALBAVANCIN [Suspect]
     Active Substance: DALBAVANCIN
     Indication: Staphylococcal infection
     Route: 041
     Dates: start: 20210226, end: 20210226
  4. DALBAVANCIN [Suspect]
     Active Substance: DALBAVANCIN
     Route: 041
     Dates: start: 20210315, end: 20210315
  5. DAPTOMYCIN [Suspect]
     Active Substance: DAPTOMYCIN
     Indication: Staphylococcal infection
     Route: 065
  6. MEROPENEM [Concomitant]
     Active Substance: MEROPENEM
     Indication: Evidence based treatment
     Dosage: UNKNOWN
     Route: 065
     Dates: start: 20210414

REACTIONS (2)
  - Endocarditis [Unknown]
  - Pathogen resistance [Unknown]
